FAERS Safety Report 6432577-9 (Version None)
Quarter: 2009Q4

REPORT INFORMATION
  Report Type: 
  Country: None (occurrence: None)
  Receive Date: 20091105
  Receipt Date: 20091022
  Transmission Date: 20100525
  Serious: Yes (Hospitalization)
  Sender: FDA-Public Use
  Company Number: 2009AP004284

PATIENT
  Age: 67 Year
  Sex: Female

DRUGS (5)
  1. DICLOFENAC SODIUM [Suspect]
     Dosage: 75 MG; BID PO, 75 MG; TAB; PO; BID
     Route: 048
     Dates: start: 20090909, end: 20090913
  2. HYDROMORPHONE HCL [Concomitant]
  3. MORPHINE SULFATE INJ [Concomitant]
  4. OXAZEPAM [Concomitant]
  5. CENTRUM (CENTRUM) [Concomitant]

REACTIONS (5)
  - ASTHENIA [None]
  - DECREASED APPETITE [None]
  - FATIGUE [None]
  - PLATELET COUNT DECREASED [None]
  - SPEECH DISORDER [None]
